FAERS Safety Report 23112288 (Version 1)
Quarter: 2023Q4

REPORT INFORMATION
  Report Type: Report from Study
  Country: JP (occurrence: JP)
  Receive Date: 20231026
  Receipt Date: 20231026
  Transmission Date: 20240110
  Serious: Yes (Hospitalization)
  Sender: FDA-Public Use
  Company Number: JP-TAKEDA-2021TJP006774

PATIENT
  Age: 69 Year
  Sex: Female
  Weight: 46 kg

DRUGS (7)
  1. PANITUMUMAB [Suspect]
     Active Substance: PANITUMUMAB
     Indication: Colon cancer
     Dosage: 6 MILLIGRAM/KILOGRAM, Q2WK
     Route: 065
     Dates: start: 20200821, end: 20210107
  2. IRINOTECAN [Suspect]
     Active Substance: IRINOTECAN
     Indication: Colon cancer
     Dosage: 150 MILLIGRAM/SQ. METER, Q2WK
     Route: 065
     Dates: start: 20200821, end: 20210107
  3. IRINOTECAN [Suspect]
     Active Substance: IRINOTECAN
     Indication: Adenocarcinoma of colon
     Dosage: 200 MILLIGRAM, Q2WEEKS
     Route: 065
     Dates: start: 20200821, end: 20200918
  4. IRINOTECAN [Suspect]
     Active Substance: IRINOTECAN
     Dosage: 160 MILLIGRAM, Q2WEEKS
     Route: 065
     Dates: start: 20201016, end: 20210107
  5. VONOPRAZAN FUMARATE [Concomitant]
     Active Substance: VONOPRAZAN FUMARATE
     Dosage: 10 MILLIGRAM, QD
     Route: 065
     Dates: start: 20181102, end: 20210222
  6. OXYCONTIN [Concomitant]
     Active Substance: OXYCODONE HYDROCHLORIDE
     Dosage: 10 MILLIGRAM
     Route: 065
     Dates: start: 20180802, end: 20210222
  7. XYZAL [Concomitant]
     Active Substance: LEVOCETIRIZINE DIHYDROCHLORIDE
     Dosage: 5 MILLIGRAM, QD
     Route: 065
     Dates: start: 20201002, end: 20210222

REACTIONS (9)
  - Haemoglobin decreased [Unknown]
  - Malaise [Not Recovered/Not Resolved]
  - Rash [Unknown]
  - Decreased appetite [Recovering/Resolving]
  - Diarrhoea [Recovering/Resolving]
  - Alopecia [Unknown]
  - Pruritus [Unknown]
  - Blood magnesium decreased [Unknown]
  - Dermatitis acneiform [Not Recovered/Not Resolved]

NARRATIVE: CASE EVENT DATE: 20210223
